FAERS Safety Report 6595328-3 (Version None)
Quarter: 2010Q1

REPORT INFORMATION
  Report Type: 
  Country: None (occurrence: None)
  Receive Date: 20100219
  Receipt Date: 20100219
  Transmission Date: 20100710
  Serious: Yes (Hospitalization)
  Sender: FDA-Public Use
  Company Number: None

PATIENT
  Age: 3 Year
  Sex: Male

DRUGS (1)
  1. ONCASPAR [Suspect]
     Indication: ACUTE LYMPHOCYTIC LEUKAEMIA
     Dosage: 1620 IU ONCE IM
     Route: 030
     Dates: start: 20100103, end: 20100103

REACTIONS (3)
  - ENTEROBACTER BACTERAEMIA [None]
  - LIVER FUNCTION TEST ABNORMAL [None]
  - PANCREATITIS [None]
